FAERS Safety Report 6463577-0 (Version None)
Quarter: 2009Q4

REPORT INFORMATION
  Report Type: 
  Country: None (occurrence: None)
  Receive Date: 20091201
  Receipt Date: 20091125
  Transmission Date: 20100525
  Serious: Yes (Hospitalization)
  Sender: FDA-Public Use
  Company Number: US-CUBIST-2009S1000519

PATIENT
  Sex: Male

DRUGS (3)
  1. CUBICIN [Suspect]
     Indication: ABSCESS
     Route: 065
  2. CUBICIN [Suspect]
     Indication: CELLULITIS
     Route: 065
  3. VANCOMYCIN [Concomitant]

REACTIONS (1)
  - ABSCESS [None]
